FAERS Safety Report 5429529-4 (Version None)
Quarter: 2007Q3

REPORT INFORMATION
  Report Type: 
  Country: None (occurrence: None)
  Receive Date: 20070829
  Receipt Date: 20060905
  Transmission Date: 20080115
  Serious: No
  Sender: FDA-Public Use
  Company Number: A0619089A

PATIENT
  Sex: Female

DRUGS (1)
  1. BECONASE [Suspect]

REACTIONS (1)
  - DRUG INEFFECTIVE [None]
